FAERS Safety Report 8506107-1 (Version None)
Quarter: 2012Q3

REPORT INFORMATION
  Report Type: 
  Country: None (occurrence: None)
  Receive Date: 20120712
  Receipt Date: 20120709
  Transmission Date: 20120928
  Serious: Yes (Other)
  Sender: FDA-Public Use
  Company Number: DE-ROCHE-1075671

PATIENT
  Sex: Female

DRUGS (5)
  1. ACTEMRA [Suspect]
     Route: 065
     Dates: start: 20111021
  2. ACTEMRA [Suspect]
     Indication: RHEUMATOID ARTHRITIS
     Route: 065
     Dates: start: 20110708
  3. ACTEMRA [Suspect]
     Route: 065
     Dates: start: 20111214
  4. ACTEMRA [Suspect]
     Route: 065
     Dates: start: 20111118
  5. ACTEMRA [Suspect]
     Route: 065
     Dates: start: 20110916

REACTIONS (1)
  - MYOCARDIAL ISCHAEMIA [None]
